FAERS Safety Report 9757950 (Version 1)
Quarter: 2013Q4

REPORT INFORMATION
  Report Type: Spontaneous
  Country: US (occurrence: US)
  Receive Date: 20131216
  Receipt Date: 20131216
  Transmission Date: 20140711
  Serious: No
  Sender: FDA-Public Use
  Company Number: US-TEVA-409994USA

PATIENT
  Sex: Female
  Weight: 56.75 kg

DRUGS (1)
  1. PARAGARD 380A [Suspect]
     Indication: CONTRACEPTION
     Route: 015
     Dates: start: 2008, end: 20130531

REACTIONS (4)
  - Metrorrhagia [Unknown]
  - Muscle spasms [Unknown]
  - Fatigue [Recovered/Resolved]
  - Medical device complication [Recovered/Resolved]
